FAERS Safety Report 16793969 (Version 2)
Quarter: 2020Q1

REPORT INFORMATION
  Report Type: Spontaneous
  Country: JP (occurrence: JP)
  Receive Date: 20190911
  Receipt Date: 20200218
  Transmission Date: 20200409
  Serious: Yes (Other)
  Sender: FDA-Public Use
  Company Number: JP-SAKK-2019SA250636AA

PATIENT
  Age: 37 Year
  Sex: Male

DRUGS (4)
  1. DUPIXENT [Suspect]
     Active Substance: DUPILUMAB
     Indication: DERMATITIS ATOPIC
     Dosage: 300 MG, QOW
     Route: 058
     Dates: start: 20190207
  2. EPINASTINE HYDROCHLORIDE. [Concomitant]
     Active Substance: EPINASTINE HYDROCHLORIDE
     Indication: DERMATITIS ATOPIC
     Dosage: 20 MG, QD
     Route: 048
     Dates: start: 20190531
  3. DIFLUPREDNATE [Concomitant]
     Active Substance: DIFLUPREDNATE
     Indication: DERMATITIS ATOPIC
     Dosage: UNK, BID
     Route: 062
     Dates: start: 20190719
  4. HEPARINOID [Concomitant]
     Active Substance: CHONDROITIN SULFATE (BOVINE)
     Indication: DERMATITIS ATOPIC
     Dosage: UNK UNK, BID
     Route: 062
     Dates: start: 20190621

REACTIONS (8)
  - Anaemia [Unknown]
  - Stress [Unknown]
  - Syncope [Recovered/Resolved]
  - Fall [Recovered/Resolved]
  - Product use issue [Unknown]
  - Injection site pain [Unknown]
  - Subcutaneous haematoma [Unknown]
  - Loss of consciousness [Recovered/Resolved]

NARRATIVE: CASE EVENT DATE: 20190823
